FAERS Safety Report 22947163 (Version 2)
Quarter: 2024Q2

REPORT INFORMATION
  Report Type: Other
  Country: US (occurrence: None)
  Receive Date: 20230915
  Receipt Date: 20240524
  Transmission Date: 20240716
  Serious: No
  Sender: FDA-Public Use
  Company Number: US-ROCHE-3410477

PATIENT
  Age: 48 Year
  Sex: Female

DRUGS (2)
  1. PRALSETINIB [Suspect]
     Active Substance: PRALSETINIB
     Indication: Lung adenocarcinoma
     Route: 048
  2. PRALSETINIB [Suspect]
     Active Substance: PRALSETINIB
     Route: 048

REACTIONS (1)
  - Ascites [Recovering/Resolving]
